FAERS Safety Report 24023495 (Version 2)
Quarter: 2024Q3

REPORT INFORMATION
  Report Type: Spontaneous
  Country: CN (occurrence: CN)
  Receive Date: 20240627
  Receipt Date: 20240710
  Transmission Date: 20241017
  Serious: No
  Sender: ROCHE
  Company Number: CN-ROCHE-3403893

PATIENT
  Age: 53 Year
  Sex: Male

DRUGS (4)
  1. ALECENSA [Suspect]
     Active Substance: ALECTINIB HYDROCHLORIDE
     Indication: Non-small cell lung cancer
     Route: 065
  2. ALECENSA [Suspect]
     Active Substance: ALECTINIB HYDROCHLORIDE
     Indication: Metastases to central nervous system
  3. CRIZOTINIB [Concomitant]
     Active Substance: CRIZOTINIB
     Indication: Non-small cell lung cancer
  4. CRIZOTINIB [Concomitant]
     Active Substance: CRIZOTINIB
     Indication: Metastases to central nervous system

REACTIONS (2)
  - Disease progression [Unknown]
  - Drug ineffective [Unknown]
